FAERS Safety Report 4976914-0 (Version None)
Quarter: 2006Q2

REPORT INFORMATION
  Report Type: 
  Country: None (occurrence: None)
  Receive Date: 20060412
  Receipt Date: 20060330
  Transmission Date: 20061013
  Serious: Yes (Congenital Anomaly)
  Sender: FDA-Public Use
  Company Number: 2006RR-01896

PATIENT
  Age: 27 Week

DRUGS (1)
  1. MORPHINE SULFATE [Suspect]
     Indication: ANALGESIC EFFECT
     Dosage: INTRA-UTERINE
     Route: 015

REACTIONS (9)
  - CEREBRAL VENTRICLE DILATATION [None]
  - CONGENITAL HYDROCEPHALUS [None]
  - DEVELOPMENTAL DELAY [None]
  - DRUG EXPOSURE DURING PREGNANCY [None]
  - FOETAL CEREBROVASCULAR DISORDER [None]
  - FOETAL HEART RATE ABNORMAL [None]
  - FOETAL HEART RATE DECELERATION [None]
  - UMBILICAL CORD VASCULAR DISORDER [None]
  - VASOCONSTRICTION [None]
